FAERS Safety Report 15951246 (Version 3)
Quarter: 2019Q2

REPORT INFORMATION
  Report Type: Spontaneous
  Country: US (occurrence: US)
  Receive Date: 20190212
  Receipt Date: 20190419
  Transmission Date: 20190711
  Serious: Yes (Other)
  Sender: FDA-Public Use
  Company Number: US-PFIZER INC-2019055456

PATIENT
  Age: 74 Year
  Sex: Female
  Weight: 99.77 kg

DRUGS (1)
  1. IBRANCE [Suspect]
     Active Substance: PALBOCICLIB
     Indication: METASTASES TO BREAST
     Dosage: 100 MG, CYCLIC(21 DAYS ON AND OFF 7 DAYS OFF)
     Dates: start: 2018

REACTIONS (10)
  - Hypersensitivity [Unknown]
  - Diabetes mellitus [Unknown]
  - Hyperhidrosis [Unknown]
  - Rash [Not Recovered/Not Resolved]
  - Urticaria [Recovering/Resolving]
  - Malaise [Not Recovered/Not Resolved]
  - Pruritus [Recovering/Resolving]
  - Glaucoma [Unknown]
  - Product use in unapproved indication [Unknown]
  - Skin disorder [Recovering/Resolving]

NARRATIVE: CASE EVENT DATE: 2019
